FAERS Safety Report 10142938 (Version 1)
Quarter: 2014Q2

REPORT INFORMATION
  Report Type: Spontaneous
  Country: US (occurrence: None)
  Receive Date: 20140428
  Receipt Date: 20140428
  Transmission Date: 20141212
  Serious: Yes (Hospitalization, Other)
  Sender: FDA-Public Use
  Company Number: AUR-APL-2014-04767

PATIENT
  Age: 68 Year
  Sex: Male

DRUGS (5)
  1. TRIMETHOPRIM+SULFAMETHOXAZOLE (TRIMETHOPRIM, SULFAMETHOXAZOLE) [Suspect]
     Indication: ANTIFUNGAL PROPHYLAXIS
  2. CEFEPIME (CEFEPIME) [Suspect]
     Indication: PRODUCT USED FOR UNKNOWN INDICATION
  3. OMEPRAZOLE (OMEPRAZOLE) [Concomitant]
  4. PROCHLORPERAZINE (PROCHLORPERAZINE) [Concomitant]
  5. VANCOMYCIN (VANCOMYCIN) [Suspect]
     Indication: PRODUCT USED FOR UNKNOWN INDICATION

REACTIONS (7)
  - Decubitus ulcer [None]
  - Infusion site haematoma [None]
  - Neutropenia [None]
  - Escherichia bacteraemia [None]
  - Pneumocystis jirovecii pneumonia [None]
  - Febrile neutropenia [None]
  - Candida infection [None]
